FAERS Safety Report 24681951 (Version 2)
Quarter: 2025Q3

REPORT INFORMATION
  Report Type: Spontaneous
  Country: EU (occurrence: EU)
  Receive Date: 20241130
  Receipt Date: 20250803
  Transmission Date: 20251021
  Serious: Yes (Life-Threatening, Hospitalization, Other)
  Sender: ALEXION PHARMACEUTICALS
  Company Number: EU-DCGMA-24204309

PATIENT
  Age: 66 Year
  Sex: Male
  Weight: 105 kg

DRUGS (8)
  1. XIGDUO XR [Suspect]
     Active Substance: DAPAGLIFLOZIN PROPANEDIOL\METFORMIN HYDROCHLORIDE
     Indication: Diabetes mellitus
     Dosage: UNK UNK, BID
  2. METOPROLOL [Concomitant]
     Active Substance: METOPROLOL
  3. HYDROCHLOROTHIAZIDE\RAMIPRIL [Concomitant]
     Active Substance: HYDROCHLOROTHIAZIDE\RAMIPRIL
  4. LERCANIDIPIN-HCL AL [Concomitant]
     Dosage: DAILY DOSE: 10 MG EVERY 1 DAY
  5. EZETIMIBE\ROSUVASTATIN [Concomitant]
     Active Substance: EZETIMIBE\ROSUVASTATIN
  6. ALLOPURINOL INDOCO [Concomitant]
     Dosage: DAILY DOSE: 300 MG EVERY 1 DAY
  7. ALLOPURINOL INDOCO [Concomitant]
     Dosage: 300 MILLIGRAM, QD
  8. TRULICITY [Concomitant]
     Active Substance: DULAGLUTIDE

REACTIONS (1)
  - Necrotising fasciitis [Not Recovered/Not Resolved]

NARRATIVE: CASE EVENT DATE: 20220101
